FAERS Safety Report 15892689 (Version 1)
Quarter: 2019Q1

REPORT INFORMATION
  Report Type: Report from Study
  Country: US (occurrence: US)
  Receive Date: 20190130
  Receipt Date: 20190130
  Transmission Date: 20190417
  Serious: No
  Sender: FDA-Public Use
  Company Number: US-EXELIXIS-CABO-18015509

PATIENT
  Age: 71 Year
  Sex: Male

DRUGS (1)
  1. COMETRIQ [Suspect]
     Active Substance: CABOZANTINIB S-MALATE
     Indication: PRODUCT USED FOR UNKNOWN INDICATION
     Dosage: 140 MG, QD (ONE 80MG CAPSULE AND THREE 20 MG CAPSULES)
     Route: 048
     Dates: start: 20180803, end: 20180810

REACTIONS (5)
  - Dyspnoea [Unknown]
  - Feeding disorder [Unknown]
  - Vertigo [Unknown]
  - Orthostatic hypotension [Recovered/Resolved]
  - Nausea [Unknown]

NARRATIVE: CASE EVENT DATE: 201808
